FAERS Safety Report 12089709 (Version 1)
Quarter: 2016Q1

REPORT INFORMATION
  Report Type: Spontaneous
  Country: GB (occurrence: GB)
  Receive Date: 20160218
  Receipt Date: 20160218
  Transmission Date: 20160526
  Serious: Yes (Other)
  Sender: FDA-Public Use
  Company Number: GB-ABBVIE-16P-167-1555520-00

PATIENT
  Age: 53 Year
  Sex: Female

DRUGS (5)
  1. EPILIM [Interacting]
     Active Substance: VALPROATE SODIUM
     Route: 065
  2. LEVOTHYROXINE. [Interacting]
     Active Substance: LEVOTHYROXINE
     Indication: HYPOTHYROIDISM
     Route: 065
  3. LEVOTHYROXINE. [Interacting]
     Active Substance: LEVOTHYROXINE
     Route: 065
  4. EPILIM [Suspect]
     Active Substance: VALPROATE SODIUM
     Indication: EPILEPSY
     Route: 065
  5. LEVOTHYROXINE. [Interacting]
     Active Substance: LEVOTHYROXINE
     Route: 065

REACTIONS (5)
  - Hypothyroidism [Not Recovered/Not Resolved]
  - Condition aggravated [Not Recovered/Not Resolved]
  - Osteoporosis [Unknown]
  - Blood test abnormal [Not Recovered/Not Resolved]
  - Drug interaction [Unknown]

NARRATIVE: CASE EVENT DATE: 2008
